FAERS Safety Report 23326825 (Version 1)
Quarter: 2023Q4

REPORT INFORMATION
  Report Type: Spontaneous
  Country: JP (occurrence: JP)
  Receive Date: 20231221
  Receipt Date: 20231221
  Transmission Date: 20240109
  Serious: Yes (Other)
  Sender: FDA-Public Use
  Company Number: JP-Eisai-202304138_LEN-TMC_P_1

PATIENT
  Sex: Female

DRUGS (2)
  1. LENVIMA [Suspect]
     Active Substance: LENVATINIB
     Indication: Thymic carcinoma
     Route: 048
  2. LENVIMA [Suspect]
     Active Substance: LENVATINIB
     Dosage: DOSE REDUCED (DOSE AND FREQUENCY UNKNOWN).
     Route: 048

REACTIONS (2)
  - Leukoencephalopathy [Recovered/Resolved]
  - Thrombocytopenia [Recovered/Resolved]
